FAERS Safety Report 4975578-X (Version None)
Quarter: 2006Q1

REPORT INFORMATION
  Report Type: 
  Country: None (occurrence: None)
  Receive Date: 20060222
  Receipt Date: 20050407
  Transmission Date: 20060701
  Serious: Yes (Other)
  Sender: FDA-Public Use
  Company Number: HQWYE879508APR05

PATIENT
  Age: 42 Year
  Sex: Male
  Weight: 79.45 kg

DRUGS (2)
  1. PROTONIX [Suspect]
     Indication: GASTROOESOPHAGEAL REFLUX DISEASE
     Dates: start: 20031231
  2. LISINOPRIL [Concomitant]

REACTIONS (1)
  - PANCREATITIS [None]
